FAERS Safety Report 6871671-5 (Version None)
Quarter: 2010Q3

REPORT INFORMATION
  Report Type: 
  Country: None (occurrence: None)
  Receive Date: 20100723
  Receipt Date: 20100715
  Transmission Date: 20110219
  Serious: Yes (Death)
  Sender: FDA-Public Use
  Company Number: GXKR2010AU07848

PATIENT
  Age: 58 Year
  Sex: Female

DRUGS (5)
  1. TRAMADOL (NGX) [Suspect]
     Route: 065
  2. QUETIAPINE (NGX) [Interacting]
     Route: 065
  3. FUROSEMIDE (NGX) [Interacting]
     Route: 065
  4. GLICLAZIDE (NGX) [Interacting]
     Route: 065
  5. CHLORPROMAZINE [Interacting]
     Route: 065

REACTIONS (2)
  - DRUG INTERACTION [None]
  - DRUG TOXICITY [None]
